FAERS Safety Report 7516487-1 (Version None)
Quarter: 2011Q2

REPORT INFORMATION
  Report Type: 
  Country: None (occurrence: None)
  Receive Date: 20110601
  Receipt Date: 20110531
  Transmission Date: 20111010
  Serious: Yes (Other)
  Sender: FDA-Public Use
  Company Number: A0901831A

PATIENT
  Sex: Female
  Weight: 3 kg

DRUGS (6)
  1. COMBIVIR [Suspect]
     Indication: HIV INFECTION
     Dosage: 2TAB PER DAY
     Route: 064
     Dates: start: 20101006, end: 20110512
  2. ATRIPLA [Suspect]
     Indication: HIV INFECTION
     Dosage: 1TAB PER DAY
     Route: 064
     Dates: start: 20071015, end: 20101006
  3. EPIVIR [Concomitant]
     Indication: ANTIVIRAL TREATMENT
     Dosage: 300MGD PER DAY
     Dates: start: 20110512, end: 20110514
  4. COMBIVIR [Concomitant]
     Indication: ANTIVIRAL TREATMENT
     Dosage: 900MGD PER DAY
     Dates: start: 20110514
  5. ZIDOVUDINE [Concomitant]
     Indication: ANTIVIRAL TREATMENT
     Dosage: 1MGKH SINGLE DOSE
     Route: 064
     Dates: start: 20110512, end: 20110512
  6. KALETRA [Suspect]
     Indication: HIV INFECTION
     Dosage: 4TAB PER DAY
     Route: 064
     Dates: start: 20101006

REACTIONS (3)
  - DRUG EXPOSURE DURING PREGNANCY [None]
  - RENAL DISORDER [None]
  - BRAIN NEOPLASM [None]
